FAERS Safety Report 7668846-4 (Version None)
Quarter: 2011Q3

REPORT INFORMATION
  Report Type: 
  Country: None (occurrence: None)
  Receive Date: 20110711
  Receipt Date: 20110426
  Transmission Date: 20111222
  Serious: Yes (Other)
  Sender: FDA-Public Use
  Company Number: IPC201104-000786

PATIENT

DRUGS (4)
  1. METOCLOPRAMIDE HYDROCHLORIDE [Suspect]
     Dosage: ORAL
     Route: 048
     Dates: start: 20070901, end: 20100501
  2. METOCLOPRAMIDE [Suspect]
     Dosage: ORAL
     Route: 048
     Dates: start: 20070901, end: 20100501
  3. REGLAN [Suspect]
     Dosage: ORAL
     Route: 048
     Dates: start: 20070901, end: 20100501
  4. METOCLOPRAMIDE [Suspect]
     Dosage: ORAL
     Route: 048
     Dates: start: 20070901, end: 20100501

REACTIONS (2)
  - TREMOR [None]
  - TARDIVE DYSKINESIA [None]
